FAERS Safety Report 7354805-8 (Version None)
Quarter: 2011Q1

REPORT INFORMATION
  Report Type: 
  Country: None (occurrence: None)
  Receive Date: 20110311
  Receipt Date: 20110311
  Transmission Date: 20110831
  Serious: Yes (Disabling)
  Sender: FDA-Public Use
  Company Number: None

PATIENT
  Sex: Female
  Weight: 58.0604 kg

DRUGS (1)
  1. NASONEX [Suspect]
     Indication: SINUS HEADACHE
     Dosage: SQUIRT IN EA. NOSTRIL ONCE/DAY
     Route: 045
     Dates: start: 20060101, end: 20100101

REACTIONS (1)
  - CATARACT [None]
